FAERS Safety Report 22250461 (Version 1)
Quarter: 2023Q2

REPORT INFORMATION
  Report Type: Spontaneous
  Country: ES (occurrence: ES)
  Receive Date: 20230425
  Receipt Date: 20230425
  Transmission Date: 20230722
  Serious: Yes (Hospitalization)
  Sender: FDA-Public Use
  Company Number: None

PATIENT
  Age: 57 Year
  Sex: Male

DRUGS (2)
  1. PACLITAXEL [Interacting]
     Active Substance: PACLITAXEL
     Indication: Oesophageal carcinoma
     Dosage: 300 MILLIGRAM (200MG/M2)
     Route: 042
     Dates: start: 20230314
  2. CARBOPLATIN [Interacting]
     Active Substance: CARBOPLATIN
     Indication: Oesophageal carcinoma
     Dosage: 348.12 MILLIGRAM, (5MG/TOTAL)
     Route: 042
     Dates: start: 20230314

REACTIONS (2)
  - Febrile neutropenia [Recovered/Resolved]
  - Drug interaction [Unknown]

NARRATIVE: CASE EVENT DATE: 20230329
